FAERS Safety Report 21204101 (Version 1)
Quarter: 2022Q3

REPORT INFORMATION
  Report Type: Other
  Country: SE (occurrence: SE)
  Receive Date: 20220812
  Receipt Date: 20220812
  Transmission Date: 20221027
  Serious: Yes (Death, Life-Threatening, Hospitalization, Other)
  Sender: FDA-Public Use
  Company Number: None

PATIENT
  Age: 3 Year
  Sex: Female

DRUGS (12)
  1. PREDNISOLONE [Suspect]
     Active Substance: PREDNISOLONE
     Indication: Pneumonia
     Dosage: 2 MILLIGRAM/KILOGRAM PER DAY (2 MG/KG/DAY)
     Route: 065
  2. PREDNISOLONE [Suspect]
     Active Substance: PREDNISOLONE
     Indication: COVID-19
  3. IBUPROFEN [Suspect]
     Active Substance: IBUPROFEN
     Indication: Ascites
     Dosage: UNK
     Route: 065
  4. IBUPROFEN [Suspect]
     Active Substance: IBUPROFEN
     Indication: Hepatosplenomegaly
  5. ACETAMINOPHEN [Suspect]
     Active Substance: ACETAMINOPHEN
     Indication: Ascites
     Dosage: UNK
     Route: 065
  6. ACETAMINOPHEN [Suspect]
     Active Substance: ACETAMINOPHEN
     Indication: Hepatosplenomegaly
  7. ASPIRIN [Suspect]
     Active Substance: ASPIRIN
     Indication: COVID-19
     Dosage: 50 MILLIGRAM/KILOGRAM PER DAY (50 MG/KG/DAY)
     Route: 065
  8. ASPIRIN [Suspect]
     Active Substance: ASPIRIN
     Indication: Pneumonia
  9. INFLIXIMAB [Suspect]
     Active Substance: INFLIXIMAB
     Indication: Pneumonia
     Dosage: 5 MILLIGRAM/KILOGRAM (5 MG/KG)
     Route: 065
     Dates: start: 2020
  10. INFLIXIMAB [Suspect]
     Active Substance: INFLIXIMAB
     Indication: COVID-19
  11. CLOPIDOGREL [Suspect]
     Active Substance: CLOPIDOGREL BISULFATE
     Indication: Hepatosplenomegaly
     Dosage: UNK
     Route: 065
  12. CLOPIDOGREL [Suspect]
     Active Substance: CLOPIDOGREL BISULFATE
     Indication: Ascites

REACTIONS (5)
  - Multisystem inflammatory syndrome [Fatal]
  - Ventricular tachyarrhythmia [Fatal]
  - COVID-19 pneumonia [Fatal]
  - Acute left ventricular failure [Fatal]
  - Drug ineffective for unapproved indication [Fatal]
